FAERS Safety Report 5495677-6 (Version None)
Quarter: 2007Q4

REPORT INFORMATION
  Report Type: 
  Country: None (occurrence: None)
  Receive Date: 20071018
  Receipt Date: 20070426
  Transmission Date: 20080405
  Serious: Yes (Death, Other)
  Sender: FDA-Public Use
  Company Number: 2006086582

PATIENT
  Age: 35 Year
  Sex: Male

DRUGS (7)
  1. NEURONTIN [Suspect]
     Indication: HEADACHE
     Dosage: 1500 MG (1 D), ORAL
     Route: 048
     Dates: start: 19980616, end: 20020701
  2. NEURONTIN [Suspect]
     Indication: MIGRAINE
     Dosage: 1500 MG (1 D), ORAL
     Route: 048
     Dates: start: 19980616, end: 20020701
  3. NEURONTIN [Suspect]
     Indication: PAIN
     Dosage: 1500 MG (1 D), ORAL
     Route: 048
     Dates: start: 19980616, end: 20020701
  4. WELLBUTRIN [Concomitant]
  5. DIAZEPAM [Concomitant]
  6. MORPHINE SULFATE [Concomitant]
  7. AMPHETAMINE SULFATE [Concomitant]

REACTIONS (4)
  - ANXIETY [None]
  - COMPLETED SUICIDE [None]
  - DRUG INEFFECTIVE [None]
  - SUICIDAL IDEATION [None]
